FAERS Safety Report 22319549 (Version 1)
Quarter: 2023Q2

REPORT INFORMATION
  Report Type: Report from Study
  Country: IT (occurrence: IT)
  Receive Date: 20230515
  Receipt Date: 20230515
  Transmission Date: 20230722
  Serious: Yes (Hospitalization, Other)
  Sender: FDA-Public Use
  Company Number: None

PATIENT
  Age: 43 Year
  Sex: Male

DRUGS (1)
  1. QUETIAPINE [Suspect]
     Active Substance: QUETIAPINE
     Indication: Behaviour disorder
     Dosage: DOSAGE: 800 UNIT: MILLIGRAMS ROUTE: ORAL
     Route: 048
     Dates: start: 20230422, end: 20230422

REACTIONS (5)
  - Restlessness [Recovered/Resolved]
  - Behaviour disorder [Recovered/Resolved]
  - Loss of consciousness [Recovered/Resolved]
  - Sopor [Recovered/Resolved]
  - Overdose [Unknown]

NARRATIVE: CASE EVENT DATE: 20230422
